FAERS Safety Report 7989556-X (Version None)
Quarter: 2011Q4

REPORT INFORMATION
  Report Type: 
  Country: None (occurrence: None)
  Receive Date: 20111219
  Receipt Date: 20101206
  Transmission Date: 20120403
  Serious: No
  Sender: FDA-Public Use
  Company Number: US-ASTRAZENECA-2010SE57679

PATIENT
  Age: 67 Year
  Sex: Male
  Weight: 95.3 kg

DRUGS (7)
  1. LORAZEPAM [Concomitant]
  2. CLONIDINE [Concomitant]
  3. LEVOTHYROXINE SODIUM [Concomitant]
  4. CRESTOR [Suspect]
     Indication: HYPERCHOLESTEROLAEMIA
     Route: 048
     Dates: start: 20101126
  5. ARICEPT [Concomitant]
  6. EXFORGE [Concomitant]
  7. TRAZEDONE [Concomitant]

REACTIONS (4)
  - NAUSEA [None]
  - DRUG DOSE OMISSION [None]
  - HEADACHE [None]
  - MUSCLE SPASMS [None]
